FAERS Safety Report 7739523-6 (Version None)
Quarter: 2011Q3

REPORT INFORMATION
  Report Type: 
  Country: None (occurrence: None)
  Receive Date: 20110909
  Receipt Date: 20110829
  Transmission Date: 20111222
  Serious: Yes (Other)
  Sender: FDA-Public Use
  Company Number: JP-ASTRAZENECA-2011SE53200

PATIENT
  Age: 78 Year
  Sex: Male
  Weight: 89 kg

DRUGS (1)
  1. CANDESARTAN CILEXETIL AND HYDROCHLOROTHIAZIDE [Suspect]
     Indication: HYPERTENSION
     Dosage: 1 DF EVERY DAY
     Route: 048
     Dates: start: 20100202, end: 20100304

REACTIONS (2)
  - HYPERTONIA [None]
  - POLLAKIURIA [None]
